FAERS Safety Report 7769747-3 (Version None)
Quarter: 2011Q3

REPORT INFORMATION
  Report Type: 
  Country: None (occurrence: None)
  Receive Date: 20110922
  Receipt Date: 20110607
  Transmission Date: 20111222
  Serious: No
  Sender: FDA-Public Use
  Company Number: US-ASTRAZENECA-2007UW14961

PATIENT
  Age: 70 Year
  Sex: Female
  Weight: 117.5 kg

DRUGS (12)
  1. SEROQUEL [Suspect]
     Route: 048
  2. KLONOPIN [Concomitant]
  3. PERCOCET [Concomitant]
  4. SEROQUEL [Suspect]
     Indication: NEURALGIA
     Dosage: 300 MG AM, 150 MG LUNCHTIME AND 300 MG PM
     Route: 048
     Dates: start: 20040101
  5. SEROQUEL [Suspect]
     Route: 048
  6. SEROQUEL [Suspect]
     Indication: DEPRESSION
     Dosage: 300 MG AM, 150 MG LUNCHTIME AND 300 MG PM
     Route: 048
     Dates: start: 20040101
  7. KLONOPIN [Concomitant]
  8. SEROQUEL [Suspect]
     Route: 048
  9. SEROQUEL [Suspect]
     Route: 048
  10. CYMBALTA [Concomitant]
  11. SEROQUEL [Suspect]
     Indication: ANXIETY
     Dosage: 300 MG AM, 150 MG LUNCHTIME AND 300 MG PM
     Route: 048
     Dates: start: 20040101
  12. SEROQUEL [Suspect]
     Indication: SUICIDAL BEHAVIOUR
     Dosage: 300 MG AM, 150 MG LUNCHTIME AND 300 MG PM
     Route: 048
     Dates: start: 20040101

REACTIONS (7)
  - WEIGHT DECREASED [None]
  - RASH PRURITIC [None]
  - SKIN DISCOLOURATION [None]
  - PRURITUS [None]
  - PAIN IN EXTREMITY [None]
  - LIVER INJURY [None]
  - DYSPHAGIA [None]
